FAERS Safety Report 6265450-X (Version None)
Quarter: 2009Q3

REPORT INFORMATION
  Report Type: 
  Country: None (occurrence: None)
  Receive Date: 20090713
  Receipt Date: 20090603
  Transmission Date: 20100115
  Serious: Yes (Other)
  Sender: FDA-Public Use
  Company Number: US-PFIZER INC-2009223017

PATIENT
  Sex: Male
  Weight: 136 kg

DRUGS (5)
  1. GLYSET [Suspect]
     Indication: DIABETES MELLITUS
     Dosage: 150 MG, UNK
     Route: 048
     Dates: start: 20080101, end: 20090501
  2. METFORMIN HYDROCHLORIDE/SITAGLIPTIN [Concomitant]
     Dosage: UNK
     Route: 065
  3. SYMLIN [Concomitant]
     Dosage: UNK
     Route: 065
  4. CORTICOSTEROIDS [Concomitant]
     Indication: SPINAL FUSION SURGERY
     Dosage: UNK
     Dates: start: 20090603
  5. ANALGESICS [Concomitant]
     Dosage: UNK

REACTIONS (4)
  - BLOOD GLUCOSE INCREASED [None]
  - DRUG DOSE OMISSION [None]
  - PRODUCT CONTAINER ISSUE [None]
  - STEROID THERAPY [None]
